FAERS Safety Report 8817054 (Version 1)
Quarter: 2012Q4

REPORT INFORMATION
  Report Type: Spontaneous
  Country: KR (occurrence: None)
  Receive Date: 20121002
  Receipt Date: 20121002
  Transmission Date: 20130627
  Serious: Yes (Hospitalization)
  Sender: FDA-Public Use
  Company Number: DSA_59789_2012

PATIENT
  Age: 76 Year
  Sex: Female

DRUGS (2)
  1. METRONIDAZOLE (METRONIDAZOLE) [Suspect]
     Indication: PRODUCT USED FOR UNKNOWN INDICATION
     Dosage: 74 g (frequency unspecified) Oral
     Route: 048
  2. CEPHALOSPORIN [Suspect]
     Indication: PRODUCT USED FOR UNKNOWN INDICATION

REACTIONS (9)
  - Encephalopathy [None]
  - Dysarthria [None]
  - Ataxia [None]
  - Dizziness [None]
  - Nervous system disorder [None]
  - Movement disorder [None]
  - Stupor [None]
  - Myoclonus [None]
  - Asterixis [None]
